FAERS Safety Report 8157556-5 (Version None)
Quarter: 2012Q1

REPORT INFORMATION
  Report Type: 
  Country: None (occurrence: None)
  Receive Date: 20120222
  Receipt Date: 20111118
  Transmission Date: 20120608
  Serious: Yes (Other)
  Sender: FDA-Public Use
  Company Number: US-ASTRAZENECA-2011SE71006

PATIENT
  Age: 72 Year
  Sex: Female
  Weight: 82.1 kg

DRUGS (22)
  1. TOPROL-XL [Suspect]
     Route: 048
  2. WELLBUTRIN SR [Concomitant]
     Route: 048
  3. VERAPAMIL HCL [Concomitant]
     Dosage: 1 AND 1/2 TABLET EVERY MORNING WITH FOOD
     Route: 048
  4. LASIX [Concomitant]
     Route: 048
  5. VENTOLIN HFA [Concomitant]
     Dosage: 108 (90 BASE) MCG/ACT 2 PUFFS AS NEEDED INHALATION EVERY 4 HRS
  6. CITALOPRAM HYDROBROMIDE [Concomitant]
     Route: 048
  7. ALLOPURINOL [Concomitant]
     Route: 048
  8. LISINOPRIL [Suspect]
     Route: 048
  9. COLCHICINE [Concomitant]
     Route: 048
  10. VALIUM [Concomitant]
     Route: 048
  11. FUROSEMIDE [Concomitant]
     Route: 048
  12. FORADIL [Concomitant]
     Route: 055
  13. ATENOLOL [Suspect]
     Route: 065
  14. SYMBICORT [Suspect]
     Dosage: 80/4.5 MCG TWO PUFFS BID
     Route: 055
  15. ASPIRIN [Concomitant]
     Route: 048
  16. ALBUTEROL SULFATE [Concomitant]
     Route: 048
  17. CALAN [Concomitant]
     Route: 048
  18. PROVENTIL-HFA [Concomitant]
     Dosage: 108 (90 BASE) MCG/ACT 2 PUFFS AS NEEDED INHALATION EVERY 4 HRS
  19. OXYCODONE HCL AND ACETAMINOPHEN [Concomitant]
  20. OXYCODONE HCL AND ACETAMINOPHEN [Concomitant]
  21. CELEXA [Concomitant]
     Route: 048
  22. LIPITOR [Concomitant]
     Route: 048

REACTIONS (14)
  - ASTHMA [None]
  - LUNG NEOPLASM [None]
  - ANGINA PECTORIS [None]
  - DEPRESSION [None]
  - ARTHRITIS [None]
  - ARTHRALGIA [None]
  - GOUT [None]
  - SECONDARY HYPERTENSION [None]
  - ANXIETY [None]
  - OBSTRUCTIVE AIRWAYS DISORDER [None]
  - HYPERLIPIDAEMIA [None]
  - ARTERIOSCLEROSIS CORONARY ARTERY [None]
  - GASTROOESOPHAGEAL REFLUX DISEASE [None]
  - OSTEOARTHRITIS [None]
